FAERS Safety Report 5667745-7 (Version None)
Quarter: 2008Q1

REPORT INFORMATION
  Report Type: 
  Country: None (occurrence: None)
  Receive Date: 20080315
  Receipt Date: 20080131
  Transmission Date: 20080703
  Serious: No
  Sender: FDA-Public Use
  Company Number: US-ABBOTT-08P-163-0436105-00

PATIENT
  Sex: Female
  Weight: 81.72 kg

DRUGS (5)
  1. HUMIRA [Suspect]
     Indication: CROHN'S DISEASE
     Route: 058
     Dates: start: 20080130, end: 20080131
  2. HUMIRA [Suspect]
     Route: 058
     Dates: start: 20080115, end: 20080115
  3. HUMIRA [Suspect]
     Route: 058
  4. IMODIUM [Concomitant]
     Indication: CROHN'S DISEASE
     Route: 048
     Dates: start: 20020101
  5. PREDNISONE [Concomitant]
     Indication: CROHN'S DISEASE
     Route: 048
     Dates: start: 20071201

REACTIONS (3)
  - ARTHRALGIA [None]
  - BACK PAIN [None]
  - DYSPNOEA [None]
